FAERS Safety Report 9684011 (Version 1)
Quarter: 2013Q4

REPORT INFORMATION
  Report Type: Spontaneous
  Country: US (occurrence: US)
  Receive Date: 20131112
  Receipt Date: 20131112
  Transmission Date: 20140711
  Serious: No
  Sender: FDA-Public Use
  Company Number: US-ENDO PHARMACEUTICALS INC.-DIAZ20130001

PATIENT
  Sex: Female

DRUGS (1)
  1. DIAZEPAM 2MG [Suspect]
     Indication: MUSCLE SPASMS
     Route: 048
     Dates: start: 20130120, end: 20130120

REACTIONS (3)
  - Diarrhoea [Unknown]
  - Abdominal discomfort [Recovered/Resolved]
  - Drug effect decreased [Recovered/Resolved]
